FAERS Safety Report 7386287-4 (Version None)
Quarter: 2011Q1

REPORT INFORMATION
  Report Type: 
  Country: None (occurrence: None)
  Receive Date: 20110331
  Receipt Date: 20110316
  Transmission Date: 20110831
  Serious: Yes (Other)
  Sender: FDA-Public Use
  Company Number: PHHY2011GR21325

PATIENT
  Age: 71 Year
  Sex: Female

DRUGS (2)
  1. RASILEZ [Suspect]
     Indication: HYPERTENSION
     Dosage: 300 MG, QD
     Route: 048
  2. FLUDEX [Concomitant]
     Dosage: 1.5 MG, UNK

REACTIONS (2)
  - HOT FLUSH [None]
  - PYREXIA [None]
